FAERS Safety Report 8436180-0 (Version None)
Quarter: 2012Q2

REPORT INFORMATION
  Report Type: 
  Country: None (occurrence: None)
  Receive Date: 20120614
  Receipt Date: 20120608
  Transmission Date: 20120825
  Serious: Yes (Other)
  Sender: FDA-Public Use
  Company Number: SG-PFIZER INC-2012139293

PATIENT
  Sex: Male

DRUGS (1)
  1. DILANTIN [Suspect]
     Dosage: 100 MG, UNK
     Route: 048

REACTIONS (3)
  - CONVULSION [None]
  - ANXIETY [None]
  - DRUG INEFFECTIVE [None]
